FAERS Safety Report 4545781-1 (Version None)
Quarter: 2005Q1

REPORT INFORMATION
  Report Type: 
  Country: None (occurrence: None)
  Receive Date: 20050103
  Receipt Date: 20041215
  Transmission Date: 20050727
  Serious: Yes (Hospitalization)
  Sender: FDA-Public Use
  Company Number: USA041286303

PATIENT
  Age: 54 Year
  Sex: Male

DRUGS (3)
  1. FORTEO [Suspect]
     Indication: OSTEOPOROSIS
     Dosage: 20 UG/1 DAY
     Dates: start: 20040915
  2. HEPARIN [Concomitant]
  3. VICON FORTE [Concomitant]

REACTIONS (9)
  - BACK PAIN [None]
  - BONE PAIN [None]
  - COUGH [None]
  - INJECTION SITE ERYTHEMA [None]
  - INJECTION SITE HAEMORRHAGE [None]
  - INJECTION SITE PAIN [None]
  - PHARMACEUTICAL PRODUCT COMPLAINT [None]
  - RIB FRACTURE [None]
  - SNEEZING [None]
